FAERS Safety Report 19123170 (Version 3)
Quarter: 2022Q1

REPORT INFORMATION
  Report Type: Report from Study
  Country: PR (occurrence: PR)
  Receive Date: 20210412
  Receipt Date: 20220215
  Transmission Date: 20220423
  Serious: Yes (Hospitalization, Other)
  Sender: FDA-Public Use
  Company Number: PR-ABBVIE-21K-131-3852744-00

PATIENT
  Sex: Female
  Weight: 74.002 kg

DRUGS (5)
  1. HUMIRA [Suspect]
     Active Substance: ADALIMUMAB
     Indication: Psoriasis
     Route: 058
     Dates: start: 2012
  2. HUMIRA [Suspect]
     Active Substance: ADALIMUMAB
     Indication: Psoriasis
     Route: 058
  3. HUMIRA [Suspect]
     Active Substance: ADALIMUMAB
     Indication: Rheumatoid arthritis
  4. TOZINAMERAN [Concomitant]
     Active Substance: TOZINAMERAN
     Indication: COVID-19 immunisation
     Route: 030
     Dates: start: 20210724, end: 20210724
  5. TOZINAMERAN [Concomitant]
     Active Substance: TOZINAMERAN
     Route: 030
     Dates: start: 20210814, end: 20210814

REACTIONS (15)
  - Abdominal adhesions [Recovered/Resolved]
  - Immunodeficiency [Recovered/Resolved]
  - Malaise [Unknown]
  - Parosmia [Not Recovered/Not Resolved]
  - Fatigue [Not Recovered/Not Resolved]
  - SARS-CoV-2 test positive [Recovered/Resolved]
  - Cough [Recovering/Resolving]
  - Oral fungal infection [Recovered/Resolved]
  - Psoriasis [Recovered/Resolved]
  - Psoriasis [Recovered/Resolved]
  - Rash papular [Not Recovered/Not Resolved]
  - Pyrexia [Recovered/Resolved]
  - Nasal congestion [Recovered/Resolved]
  - Hyperhidrosis [Recovered/Resolved]
  - Dyspnoea [Not Recovered/Not Resolved]

NARRATIVE: CASE EVENT DATE: 20180101
